FAERS Safety Report 7930578-2 (Version None)
Quarter: 2011Q4

REPORT INFORMATION
  Report Type: 
  Country: None (occurrence: None)
  Receive Date: 20111121
  Receipt Date: 20111107
  Transmission Date: 20120403
  Serious: Yes (Other)
  Sender: FDA-Public Use
  Company Number: US-ROCHE-401802

PATIENT
  Sex: Female

DRUGS (5)
  1. DOXORUBICIN HCL [Suspect]
     Indication: BREAST CANCER
     Dosage: ON DAY 1 OF EVERY 3 WEEK CYCLE X 4.
     Route: 042
  2. HERCEPTIN [Suspect]
     Indication: BREAST CANCER
     Dosage: LOADING DOSE, GIVEN ON WEEK 13 ONLY.
     Route: 042
  3. CYCLOPHOSPHAMIDE [Suspect]
     Indication: BREAST CANCER
     Dosage: ON DAY 1 OF EVERY 3 WEEK CYCLE X 4.
     Route: 042
  4. PACLITAXEL [Suspect]
     Indication: BREAST CANCER
     Dosage: STARTING ON DAY 1 OF WEEK 13 X 12.
     Route: 042
  5. HERCEPTIN [Suspect]
     Dosage: MAINTENANCE DOSE, FOR 51 WEEKS STARTING ON DAY 1 OF WEEK 14.
     Route: 042

REACTIONS (1)
  - MYOCARDIAL INFARCTION [None]
